FAERS Safety Report 4960964-4 (Version None)
Quarter: 2006Q2

REPORT INFORMATION
  Report Type: 
  Country: None (occurrence: None)
  Receive Date: 20060403
  Receipt Date: 20060313
  Transmission Date: 20061013
  Serious: Yes (Hospitalization)
  Sender: FDA-Public Use
  Company Number: CA-SANOFI-SYNTHELABO-F01200600740

PATIENT
  Sex: Male

DRUGS (4)
  1. OXALIPLATIN [Suspect]
     Indication: COLORECTAL CANCER METASTATIC
     Route: 065
     Dates: start: 20060228, end: 20060228
  2. FLUOROURACIL [Suspect]
     Route: 065
  3. LEUCOVORIN [Suspect]
     Dosage: UNK
     Route: 065
     Dates: start: 20060228, end: 20060228
  4. AVASTIN [Suspect]
     Route: 042

REACTIONS (10)
  - ARRHYTHMIA [None]
  - ATRIAL FIBRILLATION [None]
  - BLOOD CHOLESTEROL INCREASED [None]
  - BLOOD TRIGLYCERIDES INCREASED [None]
  - BRADYCARDIA [None]
  - DILATATION ATRIAL [None]
  - ISCHAEMIA [None]
  - PULMONARY HYPERTENSION [None]
  - VENTRICULAR EXTRASYSTOLES [None]
  - VENTRICULAR HYPERTROPHY [None]
